FAERS Safety Report 9147423 (Version 2)
Quarter: 2013Q2

REPORT INFORMATION
  Report Type: Spontaneous
  Country: CN (occurrence: CN)
  Receive Date: 20130307
  Receipt Date: 20130402
  Transmission Date: 20140414
  Serious: Yes (Other)
  Sender: FDA-Public Use
  Company Number: CN-GLAXOSMITHKLINE-B0873057A

PATIENT
  Age: 50 Year
  Sex: Female

DRUGS (1)
  1. SEROXAT [Suspect]
     Indication: DEPRESSION
     Dosage: 20MG PER DAY
     Route: 048
     Dates: start: 201212, end: 20130228

REACTIONS (9)
  - Convulsion [Recovered/Resolved]
  - Hypoacusis [Recovered/Resolved]
  - Dysgeusia [Recovered/Resolved]
  - Cold sweat [Recovered/Resolved]
  - Chest discomfort [Recovered/Resolved]
  - Tinnitus [Recovered/Resolved]
  - Malaise [Recovered/Resolved]
  - Muscle spasms [Recovered/Resolved]
  - Peripheral coldness [Recovered/Resolved]
